FAERS Safety Report 16297598 (Version 1)
Quarter: 2019Q2

REPORT INFORMATION
  Report Type: Spontaneous
  Country: US (occurrence: US)
  Receive Date: 20190509
  Receipt Date: 20190509
  Transmission Date: 20190711
  Serious: Yes (Other)
  Sender: FDA-Public Use
  Company Number: None

PATIENT
  Age: 5 Year
  Sex: Female
  Weight: 18 kg

DRUGS (2)
  1. BANANA BOAT BABY SUNSCREEN [AVOBENZONE\HOMOSALATE\OCTOCRYLENE] [Suspect]
     Active Substance: AVOBENZONE\HOMOSALATE\OCTOCRYLENE
     Indication: SUNBURN
     Dates: start: 20190503, end: 20190503
  2. BANANA BOAT BABY SUNSCREEN [AVOBENZONE\HOMOSALATE\OCTOCRYLENE] [Suspect]
     Active Substance: AVOBENZONE\HOMOSALATE\OCTOCRYLENE
     Indication: PROPHYLAXIS
     Dates: start: 20190503, end: 20190503

REACTIONS (2)
  - Chemical burn [None]
  - Application site burn [None]

NARRATIVE: CASE EVENT DATE: 20190503
